FAERS Safety Report 14676478 (Version 1)
Quarter: 2018Q1

REPORT INFORMATION
  Report Type: Spontaneous
  Country: US (occurrence: US)
  Receive Date: 20180323
  Receipt Date: 20180323
  Transmission Date: 20180509
  Serious: Yes (Other)
  Sender: FDA-Public Use
  Company Number: US-ALSI-201800186

PATIENT
  Age: 55 Year
  Sex: Female

DRUGS (1)
  1. CARBON DIOXIDE. [Suspect]
     Active Substance: CARBON DIOXIDE
     Indication: ENDOSCOPIC VESSEL HARVESTING
     Route: 058

REACTIONS (2)
  - Off label use [Recovered/Resolved]
  - Air embolism [Recovered/Resolved]
